FAERS Safety Report 17038043 (Version 3)
Quarter: 2019Q4

REPORT INFORMATION
  Report Type: Spontaneous
  Country: GB (occurrence: GB)
  Receive Date: 20191115
  Receipt Date: 20191220
  Transmission Date: 20200122
  Serious: Yes (Life-Threatening, Hospitalization, Other)
  Sender: FDA-Public Use
  Company Number: GB-MYLANLABS-2019M1109303

PATIENT
  Sex: Male

DRUGS (1)
  1. CLOZARIL [Suspect]
     Active Substance: CLOZAPINE
     Indication: SCHIZOPHRENIA
     Dosage: UNK
     Route: 048
     Dates: start: 20031021, end: 201911

REACTIONS (5)
  - Cardiac arrest [Unknown]
  - Suicide attempt [Unknown]
  - Loss of consciousness [Unknown]
  - Depression [Unknown]
  - Injury [Unknown]

NARRATIVE: CASE EVENT DATE: 2019
